FAERS Safety Report 7023545-7 (Version None)
Quarter: 2010Q3

REPORT INFORMATION
  Report Type: 
  Country: None (occurrence: None)
  Receive Date: 20100930
  Receipt Date: 20100930
  Transmission Date: 20110219
  Serious: No
  Sender: FDA-Public Use
  Company Number: None

PATIENT
  Sex: Male
  Weight: 90.7194 kg

DRUGS (1)
  1. ACTOS [Suspect]
     Indication: TYPE 2 DIABETES MELLITUS
     Dosage: 1 PILL A DAY 1 A DAY PO
     Route: 048
     Dates: start: 20060101, end: 20080315

REACTIONS (3)
  - SNORING [None]
  - TREMOR [None]
  - WEIGHT INCREASED [None]
